FAERS Safety Report 9467361 (Version 1)
Quarter: 2013Q3

REPORT INFORMATION
  Report Type: Spontaneous
  Country: US (occurrence: US)
  Receive Date: 20130821
  Receipt Date: 20130821
  Transmission Date: 20140515
  Serious: Yes (Hospitalization)
  Sender: FDA-Public Use
  Company Number: US-BRISTOL-MYERS SQUIBB COMPANY-19182344

PATIENT
  Age: 31 Year
  Sex: Female
  Weight: 135.14 kg

DRUGS (4)
  1. ABATACEPT SUBQ INJECTION 125MG/ML [Suspect]
     Indication: RHEUMATOID ARTHRITIS
     Dosage: 1DF=125MG/ML PFS (4 PACK)-NOS
     Route: 058
  2. METFORMIN HCL TABS [Concomitant]
     Route: 048
  3. LEFLUNOMIDE [Concomitant]
     Dosage: TABS
     Route: 048
  4. FISH OIL [Concomitant]
     Dosage: CAPS
     Route: 048

REACTIONS (4)
  - Pericarditis [Recovered/Resolved]
  - Pollakiuria [Unknown]
  - Chills [Recovered/Resolved]
  - Pyrexia [Recovered/Resolved]
